FAERS Safety Report 4950059-8 (Version None)
Quarter: 2006Q1

REPORT INFORMATION
  Report Type: 
  Country: None (occurrence: None)
  Receive Date: 20060320
  Receipt Date: 20060320
  Transmission Date: 20060701
  Serious: Yes (Hospitalization)
  Sender: FDA-Public Use
  Company Number: None

PATIENT
  Age: 66 Year
  Sex: Male
  Weight: 91.8 kg

DRUGS (5)
  1. TRIMETHOPRIM + SULFAMETHOXAZOLE [Suspect]
     Indication: PROPHYLAXIS
     Dosage: 160/80 DAILY
     Dates: start: 20050824, end: 20050831
  2. TRIMETHOPRIM + SULFAMETHOXAZOLE [Suspect]
     Indication: PROSTATITIS
     Dosage: 160/80 DAILY
     Dates: start: 20050824, end: 20050831
  3. GENTAMICIN [Concomitant]
  4. AMPICILLIN SODIUM [Concomitant]
  5. FINASTERIDE [Concomitant]

REACTIONS (3)
  - HYPERKALAEMIA [None]
  - POST PROCEDURAL COMPLICATION [None]
  - POSTOPERATIVE RENAL FAILURE [None]
